FAERS Safety Report 23796425 (Version 1)
Quarter: 2024Q2

REPORT INFORMATION
  Report Type: Report from Study
  Country: US (occurrence: US)
  Receive Date: 20240430
  Receipt Date: 20240430
  Transmission Date: 20240715
  Serious: No
  Sender: FDA-Public Use
  Company Number: US-ACADIA PHARMACEUTICALS INC.-ACA-2024-PIM-001725

PATIENT
  Age: 68 Year
  Sex: Male

DRUGS (10)
  1. NUPLAZID [Suspect]
     Active Substance: PIMAVANSERIN TARTRATE
     Indication: Parkinson^s disease
     Dosage: 34 MILLIGRAM, QD
     Route: 048
     Dates: start: 202311
  2. DROXIDOPA [Suspect]
     Active Substance: DROXIDOPA
  3. ATORVASTATIN [Concomitant]
     Active Substance: ATORVASTATIN
  4. CARBIDOPA [Concomitant]
     Active Substance: CARBIDOPA
  5. FISH OIL [Concomitant]
     Active Substance: FISH OIL
  6. SERTRALINE [Concomitant]
     Active Substance: SERTRALINE HYDROCHLORIDE
  7. VITAMIN D NOS [Concomitant]
     Active Substance: VITAMIN D NOS
  8. DICLOFENAC [Concomitant]
     Active Substance: DICLOFENAC
  9. DROXIDOPA [Concomitant]
     Active Substance: DROXIDOPA
  10. VITAMINS NOS [Concomitant]
     Active Substance: VITAMINS
     Dosage: UNK

REACTIONS (3)
  - Blood pressure decreased [Unknown]
  - Bone contusion [Unknown]
  - Fall [Unknown]

NARRATIVE: CASE EVENT DATE: 20240328
